FAERS Safety Report 13597580 (Version 1)
Quarter: 2017Q2

REPORT INFORMATION
  Report Type: Spontaneous
  Country: US (occurrence: US)
  Receive Date: 20170531
  Receipt Date: 20170531
  Transmission Date: 20170830
  Serious: Yes (Disabling)
  Sender: FDA-Public Use
  Company Number: None

PATIENT
  Age: 53 Year
  Sex: Male
  Weight: 84.44 kg

DRUGS (3)
  1. ABILIFY [Suspect]
     Active Substance: ARIPIPRAZOLE
     Indication: BIPOLAR DISORDER
     Dosage: 30  1 TABLET BY  AT BEDTIME MONTH
     Route: 048
     Dates: start: 20160427, end: 20160824
  2. AMIODIPINE BESYLATE 2.5 MG, GREENSTONE BRAND [Concomitant]
     Active Substance: AMLODIPINE BESYLATE
  3. ASPIR-LOW E.C. [Concomitant]

REACTIONS (2)
  - Gambling [None]
  - Libido decreased [None]

NARRATIVE: CASE EVENT DATE: 20160404
